FAERS Safety Report 12863597 (Version 1)
Quarter: 2016Q4

REPORT INFORMATION
  Report Type: Spontaneous
  Country: FR (occurrence: FR)
  Receive Date: 20161019
  Receipt Date: 20161019
  Transmission Date: 20170207
  Serious: Yes (Congenital Anomaly, Other)
  Sender: FDA-Public Use
  Company Number: FR-ABBVIE-16P-056-1756115-00

PATIENT
  Sex: Female

DRUGS (1)
  1. DEPAKINE [Suspect]
     Active Substance: VALPROATE SODIUM
     Indication: MATERNAL EXPOSURE TIMING UNSPECIFIED
     Route: 064

REACTIONS (12)
  - Tooth malformation [Unknown]
  - Scoliosis [Unknown]
  - Congenital hand malformation [Unknown]
  - Ear malformation [Unknown]
  - Learning disability [Unknown]
  - Myopia [Unknown]
  - Tooth development disorder [Unknown]
  - Jaundice neonatal [Unknown]
  - Foetal exposure during pregnancy [Unknown]
  - Cardiac murmur [Unknown]
  - Eating disorder [Unknown]
  - Limb asymmetry [Unknown]

NARRATIVE: CASE EVENT DATE: 2007
